FAERS Safety Report 4928038-6 (Version None)
Quarter: 2006Q1

REPORT INFORMATION
  Report Type: 
  Country: None (occurrence: None)
  Receive Date: 20060223
  Receipt Date: 20060206
  Transmission Date: 20060701
  Serious: Yes (Hospitalization, Other)
  Sender: FDA-Public Use
  Company Number: DSA_70874_2006

PATIENT
  Age: 22 Year
  Sex: Female
  Weight: 48.7 kg

DRUGS (14)
  1. AZATHIOPRINE [Suspect]
     Dosage: DF
     Dates: start: 19980101, end: 20050404
  2. EPREX             /SCH/ [Suspect]
     Indication: NEPHROGENIC ANAEMIA
     Dosage: 4000 IU DAILY SC
     Route: 058
     Dates: start: 19990621, end: 20050723
  3. EPREX             /SCH/ [Suspect]
     Indication: NEPHROGENIC ANAEMIA
     Dosage: 3000 IU DAILY SC
     Route: 058
     Dates: start: 20041124, end: 20050628
  4. EPREX             /SCH/ [Concomitant]
     Indication: NEPHROGENIC ANAEMIA
     Dosage: 10000 IU DAILY SC
     Route: 058
     Dates: start: 20050516, end: 20050723
  5. ARANESP [Suspect]
     Indication: NEPHROGENIC ANAEMIA
     Dosage: 150 MG QWK SC
     Route: 058
     Dates: start: 20050722, end: 20050926
  6. ARANESP [Suspect]
     Indication: NEPHROGENIC ANAEMIA
     Dosage: 150 MG 2XWK SC
     Route: 058
     Dates: start: 20050926, end: 20051129
  7. CELLCEPT [Suspect]
     Indication: SYSTEMIC LUPUS ERYTHEMATOSUS
     Dosage: 500 MG TID PO
     Route: 048
     Dates: start: 20050404, end: 20051007
  8. ACTONEL [Concomitant]
  9. CALCIUM GLUCONATE [Concomitant]
  10. AMLODIPINE [Concomitant]
  11. SODIUM BICARBONATE [Concomitant]
  12. PANTOPRAZOLE [Concomitant]
  13. PREDNISONE [Concomitant]
  14. CANDESARTAN [Concomitant]

REACTIONS (10)
  - ANAEMIA [None]
  - APLASIA PURE RED CELL [None]
  - BONE MARROW FAILURE [None]
  - DRUG INEFFECTIVE [None]
  - DYSPNOEA [None]
  - ERYTHROPOIESIS ABNORMAL [None]
  - FATIGUE [None]
  - INFECTION [None]
  - MOUTH ULCERATION [None]
  - THERAPEUTIC RESPONSE DECREASED [None]
